FAERS Safety Report 13928171 (Version 2)
Quarter: 2017Q4

REPORT INFORMATION
  Report Type: Report from Study
  Country: DE (occurrence: DE)
  Receive Date: 20170901
  Receipt Date: 20171010
  Transmission Date: 20180320
  Serious: Yes (Hospitalization, Other)
  Sender: FDA-Public Use
  Company Number: PHHY2017DE126004

PATIENT
  Sex: Female
  Weight: 60 kg

DRUGS (2)
  1. COSENTYX [Suspect]
     Active Substance: SECUKINUMAB
     Indication: PSORIASIS
     Dosage: 300 MG, QMO (EVERY 04 WEEKS)
     Route: 058
     Dates: start: 20160503, end: 201701
  2. COSENTYX [Suspect]
     Active Substance: SECUKINUMAB
     Indication: PSORIATIC ARTHROPATHY

REACTIONS (8)
  - Dysphagia [Recovered/Resolved]
  - Fungal infection [Recovered/Resolved]
  - Weight decreased [Recovered/Resolved]
  - Candida infection [Recovered/Resolved]
  - Oesophageal mucosa erythema [Recovered/Resolved]
  - General physical health deterioration [Recovered/Resolved]
  - Vocal cord thickening [Recovering/Resolving]
  - Sinusitis [Recovering/Resolving]

NARRATIVE: CASE EVENT DATE: 201608
